FAERS Safety Report 8621266-8 (Version None)
Quarter: 2012Q3

REPORT INFORMATION
  Report Type: 
  Country: None (occurrence: None)
  Receive Date: 20120824
  Receipt Date: 20120806
  Transmission Date: 20120928
  Serious: Yes (Other)
  Sender: FDA-Public Use
  Company Number: BR-VERTEX PHARMACEUTICAL INC.-2012-020043

PATIENT
  Age: 63 Year
  Sex: Male

DRUGS (2)
  1. INCIVEK [Suspect]
     Indication: PRODUCT USED FOR UNKNOWN INDICATION
  2. INCIVEK [Suspect]
     Indication: HEPATITIS C
     Dosage: DOSAGE FORM: TABLET
     Route: 065
     Dates: start: 20120610

REACTIONS (9)
  - GENERALISED ERYTHEMA [None]
  - PRURITUS [None]
  - DECREASED APPETITE [None]
  - EPISTAXIS [None]
  - ASTHENIA [None]
  - NAUSEA [None]
  - PYREXIA [None]
  - MOOD ALTERED [None]
  - HYPERSENSITIVITY [None]
